FAERS Safety Report 18263531 (Version 1)
Quarter: 2020Q3

REPORT INFORMATION
  Report Type: Spontaneous
  Country: US (occurrence: US)
  Receive Date: 20200914
  Receipt Date: 20200914
  Transmission Date: 20201103
  Serious: No
  Sender: FDA-Public Use
  Company Number: US-BAYER-2020-184584

PATIENT
  Age: 18 Month
  Sex: Male

DRUGS (3)
  1. DESITIN [ZINC OXIDE] [Concomitant]
     Indication: DERMATITIS DIAPER
  2. NEOSPORIN [NEOMYCIN SULFATE;POLYMYXIN B SULFATE] [Concomitant]
     Indication: DERMATITIS DIAPER
  3. LOTRIMIN ULTRA [Suspect]
     Active Substance: BUTENAFINE HYDROCHLORIDE
     Indication: DERMATITIS DIAPER
     Dosage: 1/2 AN INCH TO AN INCH ABOUT 3 TIMES
     Route: 061
     Dates: start: 20200831

REACTIONS (3)
  - Drug effective for unapproved indication [None]
  - Off label use [None]
  - Product administered to patient of inappropriate age [None]
